FAERS Safety Report 5194112-5 (Version None)
Quarter: 2006Q4

REPORT INFORMATION
  Report Type: 
  Country: None (occurrence: None)
  Receive Date: 20061226
  Receipt Date: 20061218
  Transmission Date: 20070319
  Serious: Yes (Other)
  Sender: FDA-Public Use
  Company Number: 233725

PATIENT

DRUGS (4)
  1. RAPTIVA [Suspect]
     Indication: PSORIASIS
     Dates: start: 20050101
  2. ZOCOR [Concomitant]
  3. FOLATE (FOLATE SODIUM) [Concomitant]
  4. VIAGRA [Concomitant]

REACTIONS (2)
  - BLOOD CALCIUM INCREASED [None]
  - PAPILLARY THYROID CANCER [None]
